FAERS Safety Report 14060230 (Version 1)
Quarter: 2017Q4

REPORT INFORMATION
  Report Type: Report from Study
  Country: US (occurrence: US)
  Receive Date: 20171006
  Receipt Date: 20171006
  Transmission Date: 20180321
  Serious: No
  Sender: FDA-Public Use
  Company Number: US-AMGEN-USASL2017043707

PATIENT
  Age: 90 Year
  Sex: Female

DRUGS (15)
  1. HYGROTON [Concomitant]
     Active Substance: CHLORTHALIDONE
     Dosage: 25 MG, QD
  2. PROLIA [Suspect]
     Active Substance: DENOSUMAB
     Indication: OSTEOPOROSIS POSTMENOPAUSAL
     Dosage: 60 MG, Q6MO
     Route: 058
     Dates: start: 20111214
  3. REMERON [Concomitant]
     Active Substance: MIRTAZAPINE
     Dosage: 30 MG (1/2 TABLET), QD
  4. DRISDOL [Concomitant]
     Active Substance: ERGOCALCIFEROL
     Dosage: 50000 UNIT(EVERY FOURTEEN DAYS)
  5. REGLAN [Concomitant]
     Active Substance: METOCLOPRAMIDE HYDROCHLORIDE
     Dosage: 5 MG, (1/2 TABLET THREE TIMES DAILY)
  6. COUMADIN [Concomitant]
     Active Substance: WARFARIN SODIUM
     Dosage: 3.5 MG, Q3WK
     Dates: start: 20161212
  7. PROLIA [Suspect]
     Active Substance: DENOSUMAB
     Indication: SENILE OSTEOPOROSIS
     Dosage: UNK
     Route: 058
  8. TENORMIN [Concomitant]
     Active Substance: ATENOLOL
     Dosage: 50 MG, BID
  9. PEPCID [Concomitant]
     Active Substance: FAMOTIDINE
     Dosage: 20 MG, UNK
  10. ZOFRAN [Concomitant]
     Active Substance: ONDANSETRON HYDROCHLORIDE
     Dosage: 8 MG, UNK
  11. PRAVACHOL [Concomitant]
     Active Substance: PRAVASTATIN SODIUM
     Dosage: 40 MG, QD
  12. TUMS [Concomitant]
     Active Substance: CALCIUM CARBONATE
     Dosage: 500 MG,(3TABS BY MOUTH DAILY ) QD
  13. KLONOPIN [Concomitant]
     Active Substance: CLONAZEPAM
     Indication: ANXIETY
     Dosage: 0.5 MG, BID
  14. COZAAR [Concomitant]
     Active Substance: LOSARTAN POTASSIUM
     Dosage: 100 MG, (50 MG TOTAL BY MOUTH DAILY)
  15. COUMADIN [Concomitant]
     Active Substance: WARFARIN SODIUM
     Dosage: 3 MG, UNK

REACTIONS (3)
  - Joint stiffness [Unknown]
  - Arthralgia [Unknown]
  - Tooth fracture [Unknown]
